FAERS Safety Report 24049091 (Version 3)
Quarter: 2024Q4

REPORT INFORMATION
  Report Type: Spontaneous
  Country: DE (occurrence: DE)
  Receive Date: 20240704
  Receipt Date: 20241113
  Transmission Date: 20250114
  Serious: Yes (Other)
  Sender: AUROBINDO
  Company Number: DE-BRISTOL-MYERS SQUIBB COMPANY-2024-091479

PATIENT
  Age: 64 Year
  Sex: Female
  Weight: 53 kg

DRUGS (15)
  1. CARBOPLATIN [Suspect]
     Active Substance: CARBOPLATIN
     Indication: Non-small cell lung cancer
     Dosage: UNK (5 AUC - MG/MIN*ML)
     Route: 042
     Dates: start: 20240506
  2. CARBOPLATIN [Suspect]
     Active Substance: CARBOPLATIN
     Dosage: UNK (5 AUC - MG/MIN*ML)
     Route: 042
     Dates: start: 20240528
  3. CARBOPLATIN [Suspect]
     Active Substance: CARBOPLATIN
     Dosage: UNK (5 AUC - MG/MIN*ML)
     Route: 042
     Dates: start: 20240618
  4. PEMETREXED [Suspect]
     Active Substance: PEMETREXED
     Indication: Non-small cell lung cancer
     Dosage: 500 MILLIGRAM/SQ. METER
     Route: 042
     Dates: start: 20240506
  5. PEMETREXED [Suspect]
     Active Substance: PEMETREXED
     Dosage: 500 MILLIGRAM/SQ. METER
     Route: 042
     Dates: start: 20240528
  6. PEMETREXED [Suspect]
     Active Substance: PEMETREXED
     Dosage: 500 MILLIGRAM/SQ. METER
     Route: 042
     Dates: start: 20240618
  7. NIVOLUMAB [Suspect]
     Active Substance: NIVOLUMAB
     Indication: Non-small cell lung cancer
     Dosage: 360 MILLIGRAM(3WEEK)
     Route: 042
     Dates: start: 20240506, end: 20240618
  8. NIVOLUMAB [Suspect]
     Active Substance: NIVOLUMAB
     Dosage: 360 MILLIGRAM(3WEEK)
     Route: 042
     Dates: start: 20240506
  9. LEVOTHYROXINE [Concomitant]
     Active Substance: LEVOTHYROXINE
     Indication: Autoimmune thyroiditis
     Dosage: 50 MICROGRAM, ONCE A DAY (DAILY)
     Route: 048
     Dates: start: 1980
  10. LEVOTHYROXINE [Concomitant]
     Active Substance: LEVOTHYROXINE
     Dosage: 50 MICROGRAM, ONCE A DAY (DAILY)
     Route: 048
     Dates: start: 202406
  11. BISOPROLOL [Concomitant]
     Active Substance: BISOPROLOL\BISOPROLOL FUMARATE
     Indication: Hypertonia
     Dosage: 2.5 MILLIGRAM, ONCE A DAY
     Route: 048
     Dates: start: 2020
  12. BISOPROLOL [Concomitant]
     Active Substance: BISOPROLOL\BISOPROLOL FUMARATE
     Indication: Hypertension
  13. BAMIPIN [Concomitant]
     Indication: Prophylaxis
     Dosage: UNK UNK, PRN (P.R.N. (AS NEEDED)
     Route: 062
     Dates: start: 20240507
  14. Tannacomp [Concomitant]
     Indication: Prophylaxis
     Dosage: 50 MILLIGRAM, PRN (P.R.N. (AS NEEDED)
     Route: 048
     Dates: start: 20240510
  15. HYALURONATE SODIUM [Concomitant]
     Active Substance: HYALURONATE SODIUM
     Indication: Prophylaxis
     Dosage: UNK, AS NECESSARY
     Route: 061
     Dates: start: 20240507

REACTIONS (8)
  - Immune-mediated dermatitis [Recovered/Resolved]
  - Immune-mediated enterocolitis [Recovered/Resolved]
  - Hypothyroidism [Not Recovered/Not Resolved]
  - Condition aggravated [Not Recovered/Not Resolved]
  - Fatigue [Not Recovered/Not Resolved]
  - Cough [Not Recovered/Not Resolved]
  - Diarrhoea [Recovered/Resolved]
  - Dry eye [Recovered/Resolved]

NARRATIVE: CASE EVENT DATE: 20240507
